FAERS Safety Report 8599766-9 (Version None)
Quarter: 2012Q3

REPORT INFORMATION
  Report Type: 
  Country: None (occurrence: None)
  Receive Date: 20120816
  Receipt Date: 20120809
  Transmission Date: 20120928
  Serious: Yes (Other)
  Sender: FDA-Public Use
  Company Number: US-ROCHE-1099634

PATIENT
  Sex: Male

DRUGS (9)
  1. LOVASTATIN [Concomitant]
     Route: 048
  2. CARVEDILOL [Concomitant]
  3. LISINOPRIL [Concomitant]
  4. CLOPIDOGREL [Concomitant]
  5. ACETYLSALICYLIC ACID SRT [Concomitant]
     Route: 048
  6. NICOTINIC ACID [Suspect]
     Indication: TYPE IIA HYPERLIPIDAEMIA
     Route: 048
     Dates: start: 19980101
  7. EZETIMIBE [Concomitant]
  8. ISOTRETINOIN [Suspect]
     Indication: PRODUCT USED FOR UNKNOWN INDICATION
     Route: 065
     Dates: start: 19950101, end: 19950101
  9. COLESEVELAM HYDROCHLORIDE [Concomitant]

REACTIONS (3)
  - FLUSHING [None]
  - MYOCARDIAL INFARCTION [None]
  - CORONARY ARTERIAL STENT INSERTION [None]
